FAERS Safety Report 8831499 (Version 1)
Quarter: 2012Q4

REPORT INFORMATION
  Report Type: 
  Country: CA (occurrence: CA)
  Receive Date: 20121009
  Receipt Date: 20121009
  Transmission Date: 20130627
  Serious: Yes (Other)
  Sender: FDA-Public Use
  Company Number: CA-ASTRAZENECA-2012SE75657

PATIENT
  Age: 74 Year
  Sex: Male

DRUGS (1)
  1. XYLOCAINE JELLY [Suspect]
     Indication: BLADDER CATHETERISATION
     Route: 066
     Dates: start: 20120827, end: 20120827

REACTIONS (2)
  - Urethral haemorrhage [Recovered/Resolved]
  - Drug ineffective [Recovered/Resolved]
